FAERS Safety Report 8313327-8 (Version None)
Quarter: 2012Q2

REPORT INFORMATION
  Report Type: 
  Country: None (occurrence: None)
  Receive Date: 20120426
  Receipt Date: 20120416
  Transmission Date: 20120825
  Serious: Yes (Hospitalization, Other)
  Sender: FDA-Public Use
  Company Number: PHHY2011BE106597

PATIENT
  Sex: Female

DRUGS (6)
  1. AREDIA [Suspect]
     Dosage: 45 MG, QUARTERLY
     Dates: start: 20010101, end: 20070101
  2. LOSARTAN POTASSIUM [Concomitant]
  3. ZOLPIDEM [Concomitant]
     Indication: SLEEP DISORDER
  4. ZOLEDRONOC ACID [Suspect]
     Indication: OSTEOPOROSIS
     Dosage: 5 MG, UNK
     Route: 042
     Dates: start: 20090101
  5. ZOLEDRONOC ACID [Suspect]
     Indication: SPINAL FRACTURE
     Dosage: 5 MG, UNK
     Route: 042
     Dates: start: 20100101, end: 20110801
  6. CYMBALTA [Concomitant]

REACTIONS (10)
  - OSTEITIS [None]
  - TENDON RUPTURE [None]
  - SWELLING [None]
  - TOOTH DISORDER [None]
  - EMPYEMA [None]
  - ERYTHEMA [None]
  - OSTEOLYSIS [None]
  - OSTEONECROSIS OF JAW [None]
  - DENTAL FISTULA [None]
  - FRACTURE [None]
